FAERS Safety Report 8953215 (Version 1)
Quarter: 2012Q4

REPORT INFORMATION
  Report Type: 
  Country: NL (occurrence: NL)
  Receive Date: 20121206
  Receipt Date: 20121206
  Transmission Date: 20130627
  Serious: Yes (Disabling)
  Sender: FDA-Public Use
  Company Number: NL-AMGEN-NLDSP2012078047

PATIENT
  Age: 63 Year
  Sex: Male

DRUGS (3)
  1. ENBREL [Suspect]
     Indication: RHEUMATOID ARTHRITIS
     Dosage: 50 mg, weekly
     Dates: start: 2009
  2. ENBREL [Suspect]
     Dosage: 50 mg, every 10-14 days
  3. ENBREL [Suspect]
     Dosage: 50 mg, weekly
     Dates: start: 2012

REACTIONS (2)
  - Arthralgia [Unknown]
  - Arthritis [Unknown]
